FAERS Safety Report 11001767 (Version 1)
Quarter: 2015Q2

REPORT INFORMATION
  Report Type: Spontaneous
  Country: US (occurrence: US)
  Receive Date: 20150408
  Receipt Date: 20150408
  Transmission Date: 20150821
  Serious: Yes (Other)
  Sender: FDA-Public Use
  Company Number: US-SA-2015SA043623

PATIENT
  Age: 72 Year
  Sex: Male

DRUGS (1)
  1. NASACORT ALLERGY 24HR [Suspect]
     Active Substance: TRIAMCINOLONE ACETONIDE
     Indication: NASAL CONGESTION
     Dosage: START DATE: ABOUT 2 WEEKS AGO?DOSE: 55 MCG EACH NOSTRIL
     Route: 045
     Dates: end: 20150325

REACTIONS (7)
  - Abdominal pain upper [Recovering/Resolving]
  - Pulmonary congestion [Recovering/Resolving]
  - Dizziness [Recovering/Resolving]
  - Feeling abnormal [Not Recovered/Not Resolved]
  - Sinusitis [Recovering/Resolving]
  - Vertigo [Not Recovered/Not Resolved]
  - Otitis media [Recovering/Resolving]

NARRATIVE: CASE EVENT DATE: 20150330
